FAERS Safety Report 25632069 (Version 2)
Quarter: 2025Q3

REPORT INFORMATION
  Report Type: Spontaneous
  Country: EU (occurrence: EU)
  Receive Date: 20250801
  Receipt Date: 20250828
  Transmission Date: 20251020
  Serious: Yes (Life-Threatening, Other)
  Sender: Atnahs Healthcare
  Company Number: EU-ROCHE-10000337120

PATIENT

DRUGS (7)
  1. VALIUM [Suspect]
     Active Substance: DIAZEPAM
     Indication: Product used for unknown indication
  2. CLONAZEPAM [Suspect]
     Active Substance: CLONAZEPAM
     Indication: Product used for unknown indication
  3. COCAINE [Suspect]
     Active Substance: COCAINE
     Indication: Product used for unknown indication
  4. PREGABALIN [Suspect]
     Active Substance: PREGABALIN
     Indication: Product used for unknown indication
  5. TRAMADOL [Suspect]
     Active Substance: TRAMADOL
     Indication: Product used for unknown indication
  6. QUETIAPINE [Concomitant]
     Active Substance: QUETIAPINE
     Indication: Product used for unknown indication
  7. TRIMEPRAZINE [Concomitant]
     Active Substance: TRIMEPRAZINE
     Indication: Product used for unknown indication

REACTIONS (4)
  - Coma [Unknown]
  - Cardio-respiratory arrest [Unknown]
  - Bradycardia [Unknown]
  - Drug use disorder [Unknown]
